FAERS Safety Report 11063946 (Version 1)
Quarter: 2015Q2

REPORT INFORMATION
  Report Type: Spontaneous
  Country: US (occurrence: US)
  Receive Date: 20150424
  Receipt Date: 20150424
  Transmission Date: 20150821
  Serious: No
  Sender: FDA-Public Use
  Company Number: US-ELI_LILLY_AND_COMPANY-US201504007641

PATIENT
  Age: 20 Year
  Sex: Female

DRUGS (3)
  1. PRENATAL VITAMINS                  /08195401/ [Concomitant]
  2. PROZAC [Suspect]
     Active Substance: FLUOXETINE HYDROCHLORIDE
     Dosage: 20 MG, EACH MORNING
     Route: 048
     Dates: start: 2009
  3. PROZAC [Suspect]
     Active Substance: FLUOXETINE HYDROCHLORIDE
     Indication: DEPRESSION
     Dosage: 10 MG, EACH MORNING
     Route: 048
     Dates: start: 2008

REACTIONS (3)
  - Gestational diabetes [Unknown]
  - Maternal exposure during pregnancy [Recovered/Resolved]
  - Exposure during breast feeding [Unknown]

NARRATIVE: CASE EVENT DATE: 20100104
